FAERS Safety Report 18323715 (Version 1)
Quarter: 2020Q3

REPORT INFORMATION
  Report Type: Spontaneous
  Country: ES (occurrence: ES)
  Receive Date: 20200928
  Receipt Date: 20200928
  Transmission Date: 20201103
  Serious: Yes (Hospitalization, Other)
  Sender: FDA-Public Use
  Company Number: ES-PFIZER INC-2020358540

PATIENT
  Age: 47 Year
  Sex: Male
  Weight: 62.5 kg

DRUGS (11)
  1. LOSARTAN AND HYDROCHLOROTHIAZIDE [Concomitant]
     Active Substance: HYDROCHLOROTHIAZIDE\LOSARTAN POTASSIUM
     Dosage: 1 DF, 1X/DAY (1?0?0)
  2. AMLODIPINE [Concomitant]
     Active Substance: AMLODIPINE BESYLATE
     Dosage: 10 MG, 1X/DAY (0?1?0)
  3. HYDRAPRESS [Concomitant]
     Dosage: 1 DF, 3X/DAY (1?1?1)
  4. ALPRAZOLAM. [Concomitant]
     Active Substance: ALPRAZOLAM
     Dosage: 0.25 UNK, 2X/DAY (1?0?1)
  5. DOXAZOSIN [Concomitant]
     Active Substance: DOXAZOSIN MESYLATE
  6. CARDURAN [Concomitant]
     Active Substance: DOXAZOSIN MESYLATE
     Dosage: 8 MG, 2X/DAY (1?0?1)
  7. CAPTOPRIL. [Concomitant]
     Active Substance: CAPTOPRIL
  8. INSPRA [Suspect]
     Active Substance: EPLERENONE
     Indication: HYPERTENSION
     Dosage: 25 MG, DAILY
     Dates: start: 202008
  9. BISOPROLOL [Concomitant]
     Active Substance: BISOPROLOL
     Dosage: 5 MG, 2X/DAY (1?0?1)
  10. CAFINITRINA [CAFFEINE CITRATE;GLYCERYL TRINITRATE] [Concomitant]
     Active Substance: CAFFEINE CITRATE\NITROGLYCERIN
  11. HYDRAPRESS [Concomitant]
     Dosage: 25 MG, 1X/DAY (0.5?0?0.5)

REACTIONS (7)
  - Phaeochromocytoma [Unknown]
  - Quality of life decreased [Not Recovered/Not Resolved]
  - Hyperaldosteronism [Unknown]
  - Blood pressure diastolic increased [Not Recovered/Not Resolved]
  - Rebound effect [Unknown]
  - Chest pain [Not Recovered/Not Resolved]
  - Cardiac failure [Not Recovered/Not Resolved]

NARRATIVE: CASE EVENT DATE: 20200906
